FAERS Safety Report 25765353 (Version 1)
Quarter: 2025Q3

REPORT INFORMATION
  Report Type: Spontaneous
  Country: CA (occurrence: CA)
  Receive Date: 20250905
  Receipt Date: 20250905
  Transmission Date: 20251021
  Serious: Yes (Other)
  Sender: TEVA
  Company Number: CA-TEVA-VS-3369511

PATIENT
  Age: 9 Year
  Sex: Female

DRUGS (4)
  1. CLOBAZAM [Suspect]
     Active Substance: CLOBAZAM
     Indication: Severe myoclonic epilepsy of infancy
     Route: 065
  2. VALPROIC ACID [Suspect]
     Active Substance: VALPROIC ACID
     Indication: Severe myoclonic epilepsy of infancy
     Route: 065
  3. STIRIPENTOL [Suspect]
     Active Substance: STIRIPENTOL
     Indication: Severe myoclonic epilepsy of infancy
     Route: 065
  4. STIRIPENTOL [Suspect]
     Active Substance: STIRIPENTOL
     Indication: Severe myoclonic epilepsy of infancy
     Route: 065

REACTIONS (2)
  - Generalised tonic-clonic seizure [Unknown]
  - Thrombocytopenia [Unknown]
